FAERS Safety Report 12401710 (Version 2)
Quarter: 2016Q2

REPORT INFORMATION
  Report Type: Spontaneous
  Country: US (occurrence: US)
  Receive Date: 20160525
  Receipt Date: 20160527
  Transmission Date: 20160815
  Serious: Yes (Other)
  Sender: FDA-Public Use
  Company Number: US-SA-2015SA180425

PATIENT
  Age: 46 Year
  Sex: Female

DRUGS (2)
  1. LANTUS [Suspect]
     Active Substance: INSULIN GLARGINE
     Indication: TYPE 2 DIABETES MELLITUS
     Dosage: FORM: VIAL DOSE:50 UNIT(S)
     Route: 065
     Dates: start: 201401
  2. HUMULIN R [Concomitant]
     Active Substance: INSULIN HUMAN
     Dosage: 500 U/ML

REACTIONS (4)
  - Drug administration error [Unknown]
  - Diabetic hyperglycaemic coma [Unknown]
  - Blood glucose increased [Unknown]
  - Localised infection [Unknown]
